FAERS Safety Report 9332483 (Version 1)
Quarter: 2013Q2

REPORT INFORMATION
  Report Type: Spontaneous
  Country: US (occurrence: US)
  Receive Date: 20130606
  Receipt Date: 20130606
  Transmission Date: 20140414
  Serious: Yes (Death)
  Sender: FDA-Public Use
  Company Number: US-JNJFOC-20130521508

PATIENT
  Sex: 0

DRUGS (5)
  1. RISPERIDONE [Suspect]
     Indication: PSYCHOTIC DISORDER
     Route: 065
  2. QUETIAPINE [Suspect]
     Indication: PSYCHOTIC DISORDER
     Route: 065
  3. OLANZAPINE [Suspect]
     Indication: PSYCHOTIC DISORDER
     Route: 065
  4. ZIPRASIDONE [Suspect]
     Indication: PSYCHOTIC DISORDER
     Route: 065
  5. CLOZAPINE [Suspect]
     Indication: PSYCHOTIC DISORDER
     Route: 065

REACTIONS (1)
  - Diabetic ketoacidosis [Fatal]
